FAERS Safety Report 13764970 (Version 4)
Quarter: 2017Q3

REPORT INFORMATION
  Report Type: Spontaneous
  Country: US (occurrence: US)
  Receive Date: 20170718
  Receipt Date: 20170822
  Transmission Date: 20171127
  Serious: Yes (Hospitalization)
  Sender: FDA-Public Use
  Company Number: US-PFIZER INC-2017310402

PATIENT
  Age: 16 Year
  Sex: Female

DRUGS (3)
  1. XELJANZ [Suspect]
     Active Substance: TOFACITINIB CITRATE
     Dosage: UNK
     Dates: start: 201708, end: 20170815
  2. XELJANZ [Suspect]
     Active Substance: TOFACITINIB CITRATE
     Indication: EVANS SYNDROME
     Dosage: 5 MG, UNK
     Dates: start: 2017, end: 20170807
  3. XELJANZ [Suspect]
     Active Substance: TOFACITINIB CITRATE
     Indication: SYSTEMIC LUPUS ERYTHEMATOSUS
     Dosage: UNK
     Dates: start: 201612

REACTIONS (3)
  - Skin infection [Unknown]
  - Carbuncle [Unknown]
  - Drug ineffective for unapproved indication [Unknown]

NARRATIVE: CASE EVENT DATE: 20170710
